FAERS Safety Report 5113611-5 (Version None)
Quarter: 2006Q3

REPORT INFORMATION
  Report Type: 
  Country: None (occurrence: None)
  Receive Date: 20060920
  Receipt Date: 20060906
  Transmission Date: 20061208
  Serious: Yes (Hospitalization)
  Sender: FDA-Public Use
  Company Number: JP200609000896

PATIENT
  Age: 43 Year
  Sex: Female

DRUGS (1)
  1. ZYPREXA [Suspect]
     Dosage: 200 MG, DAILY (1/D), ORAL
     Route: 048
     Dates: start: 20060901, end: 20060901

REACTIONS (4)
  - INTENTIONAL OVERDOSE [None]
  - LOSS OF CONSCIOUSNESS [None]
  - PNEUMONIA [None]
  - SELF-MEDICATION [None]
